FAERS Safety Report 6761855-9 (Version None)
Quarter: 2010Q2

REPORT INFORMATION
  Report Type: 
  Country: None (occurrence: None)
  Receive Date: 20100609
  Receipt Date: 20100528
  Transmission Date: 20101027
  Serious: Yes (Hospitalization)
  Sender: FDA-Public Use
  Company Number: PHHO2010DE08160

PATIENT
  Sex: Male

DRUGS (1)
  1. ICL670A ICL+ [Suspect]
     Indication: IRON OVERLOAD
     Dosage: 1375 MG, QD
     Route: 048
     Dates: start: 20090728, end: 20100528

REACTIONS (2)
  - GRAFT VERSUS HOST DISEASE [None]
  - HEPATOTOXICITY [None]
